FAERS Safety Report 4417462-6 (Version None)
Quarter: 2004Q2

REPORT INFORMATION
  Report Type: 
  Country: None (occurrence: None)
  Receive Date: 20040629
  Receipt Date: 20040310
  Transmission Date: 20050107
  Serious: Yes (Hospitalization)
  Sender: FDA-Public Use
  Company Number: USA040361463

PATIENT
  Age: 11 Year
  Sex: Female

DRUGS (3)
  1. HUMALOG [Suspect]
     Indication: DIABETES MELLITUS
     Dates: start: 19990101
  2. HUMULIN R [Suspect]
     Indication: DIABETES MELLITUS
     Dates: start: 19990101
  3. HUMULIN L [Suspect]
     Indication: DIABETES MELLITUS

REACTIONS (3)
  - BLOOD GLUCOSE INCREASED [None]
  - DIABETIC KETOACIDOSIS [None]
  - INFECTION [None]
